FAERS Safety Report 22930811 (Version 4)
Quarter: 2024Q2

REPORT INFORMATION
  Report Type: Report from Study
  Country: US (occurrence: US)
  Receive Date: 20230911
  Receipt Date: 20240621
  Transmission Date: 20240716
  Serious: Yes (Hospitalization, Other)
  Sender: FDA-Public Use
  Company Number: US-ROCHE-3416452

PATIENT
  Age: 66 Year
  Sex: Female
  Weight: 39.92 kg

DRUGS (12)
  1. OCREVUS [Suspect]
     Active Substance: OCRELIZUMAB
     Indication: Primary progressive multiple sclerosis
     Dosage: DOT: 08-FEB-2021, 07-FEB-2022
     Route: 042
  2. OCREVUS [Suspect]
     Active Substance: OCRELIZUMAB
     Indication: Progressive multiple sclerosis
  3. CLONAZEPAM [Concomitant]
     Active Substance: CLONAZEPAM
  4. VITAMIN D3 [Concomitant]
     Active Substance: CHOLECALCIFEROL
  5. ALBUTEROL [Concomitant]
     Active Substance: ALBUTEROL
  6. SEREVENT DISKUS [Concomitant]
     Active Substance: SALMETEROL XINAFOATE
  7. FLUTICASONE [Concomitant]
     Active Substance: FLUTICASONE
  8. POTASSIUM [Concomitant]
     Active Substance: POTASSIUM
  9. LEVOTHYROXINE [Concomitant]
     Active Substance: LEVOTHYROXINE\LEVOTHYROXINE SODIUM
  10. TIZANIDINE [Concomitant]
     Active Substance: TIZANIDINE
  11. HYDROCHLOROTHIAZIDE\TRIAMTERENE [Concomitant]
     Active Substance: HYDROCHLOROTHIAZIDE\TRIAMTERENE
  12. LEVETIRACETAM [Concomitant]
     Active Substance: LEVETIRACETAM

REACTIONS (20)
  - Blood potassium decreased [Recovered/Resolved]
  - Coma [Recovered/Resolved]
  - Sepsis [Recovered/Resolved with Sequelae]
  - Brain fog [Recovered/Resolved]
  - Swelling [Recovered/Resolved]
  - Fall [Unknown]
  - Urinary tract infection [Recovered/Resolved]
  - Head injury [Recovered/Resolved]
  - Seizure [Not Recovered/Not Resolved]
  - Asthma [Not Recovered/Not Resolved]
  - Amnesia [Recovered/Resolved]
  - Osteoporosis [Not Recovered/Not Resolved]
  - Acute kidney injury [Recovered/Resolved]
  - Ulcer [Recovered/Resolved]
  - Abdominal pain upper [Recovered/Resolved]
  - Diabetes mellitus [Not Recovered/Not Resolved]
  - Weight decreased [Not Recovered/Not Resolved]
  - Bone pain [Not Recovered/Not Resolved]
  - Generalised tonic-clonic seizure [Recovered/Resolved]
  - Spinal X-ray abnormal [Not Recovered/Not Resolved]

NARRATIVE: CASE EVENT DATE: 20100612
